FAERS Safety Report 8170085-8 (Version None)
Quarter: 2012Q1

REPORT INFORMATION
  Report Type: 
  Country: None (occurrence: None)
  Receive Date: 20120228
  Receipt Date: 20120223
  Transmission Date: 20120608
  Serious: Yes (Other)
  Sender: FDA-Public Use
  Company Number: GB-PFIZER INC-2012048997

PATIENT
  Age: 76 Year
  Sex: Male

DRUGS (11)
  1. MORPHINE SULFATE [Concomitant]
  2. SERTRALINE [Concomitant]
     Dosage: UNK
     Dates: start: 20120126
  3. TAMSULOSIN [Concomitant]
  4. SERTRALINE HYDROCHLORIDE [Suspect]
  5. PROSTEP [Concomitant]
     Indication: PROSTATE CANCER
     Dosage: 1 DF, 1/3 MONTHS
  6. OMEPRAZOLE [Concomitant]
  7. RAMIPRIL [Concomitant]
  8. ADCAL-D3 [Concomitant]
  9. PARACETAMOL [Concomitant]
  10. FYBOGEL [Concomitant]
  11. THIAMINE [Concomitant]

REACTIONS (1)
  - HYPERKALAEMIA [None]
